FAERS Safety Report 9913358 (Version 1)
Quarter: 2014Q1

REPORT INFORMATION
  Report Type: Spontaneous
  Country: US (occurrence: None)
  Receive Date: 20140218
  Receipt Date: 20140218
  Transmission Date: 20141002
  Serious: Yes (Hospitalization)
  Sender: FDA-Public Use
  Company Number: None

PATIENT
  Age: 60 Year
  Sex: Male
  Weight: 89 kg

DRUGS (7)
  1. TERAZOSIN [Suspect]
     Indication: BENIGN PROSTATIC HYPERPLASIA
     Route: 048
  2. BICITRA [Concomitant]
  3. BUMETANIDE [Concomitant]
  4. INSULIN [Concomitant]
  5. LACTULOSE [Concomitant]
  6. MIRTAZAPINE [Concomitant]
  7. THIAMINE [Concomitant]

REACTIONS (1)
  - Fall [None]
